FAERS Safety Report 13203565 (Version 1)
Quarter: 2017Q1

REPORT INFORMATION
  Report Type: Spontaneous
  Country: FR (occurrence: FR)
  Receive Date: 20170209
  Receipt Date: 20170209
  Transmission Date: 20170428
  Serious: Yes (Hospitalization)
  Sender: FDA-Public Use
  Company Number: FR-ASTRAZENECA-2017SE13172

PATIENT
  Age: 20979 Day
  Sex: Male

DRUGS (4)
  1. OMEPRAZOLE. [Suspect]
     Active Substance: OMEPRAZOLE
     Indication: PROPHYLAXIS AGAINST GASTROINTESTINAL ULCER
     Dosage: 20.0MG ONCE/SINGLE ADMINISTRATION
     Route: 048
     Dates: start: 20161112, end: 20161112
  2. KETOPROFEN. [Suspect]
     Active Substance: KETOPROFEN
     Indication: BACK PAIN
     Dosage: 100.0MG ONCE/SINGLE ADMINISTRATION
     Route: 048
     Dates: start: 20161112, end: 20161112
  3. PROFENID [Suspect]
     Active Substance: KETOPROFEN
     Indication: BACK PAIN
     Dosage: 100MG/2ML TWICE A DAY (MORNING AND NIGHT)
     Route: 030
     Dates: start: 20161105, end: 20161111
  4. MIOREL [Suspect]
     Active Substance: THIOCOLCHICOSIDE
     Indication: BACK PAIN
     Dosage: 4.0MG ONCE/SINGLE ADMINISTRATION
     Route: 048
     Dates: start: 20161112, end: 20161112

REACTIONS (9)
  - Generalised erythema [Recovered/Resolved]
  - Oedema peripheral [Recovered/Resolved]
  - Urticaria papular [Recovered/Resolved]
  - Rhinorrhoea [Unknown]
  - Blood lactate dehydrogenase increased [Not Recovered/Not Resolved]
  - Rash [Unknown]
  - C-reactive protein increased [Unknown]
  - Inflammation [Unknown]
  - Transaminases increased [Not Recovered/Not Resolved]

NARRATIVE: CASE EVENT DATE: 20161112
